FAERS Safety Report 10084858 (Version 1)
Quarter: 2014Q2

REPORT INFORMATION
  Report Type: Report from Study
  Country: JP (occurrence: JP)
  Receive Date: 20140417
  Receipt Date: 20140417
  Transmission Date: 20141212
  Serious: Yes (Hospitalization, Other)
  Sender: FDA-Public Use
  Company Number: JP-TAKEDA-2014TJP005019

PATIENT
  Age: 61 Year
  Sex: Female
  Weight: 50.9 kg

DRUGS (4)
  1. ALOGLIPTIN [Suspect]
     Indication: TYPE 2 DIABETES MELLITUS
     Dosage: 12.5 MG, QD
     Route: 048
     Dates: start: 20130122
  2. AMARYL [Concomitant]
     Indication: TYPE 2 DIABETES MELLITUS
     Dosage: 6 MG, 1 DAYS
     Route: 048
     Dates: end: 20130121
  3. AMARYL [Concomitant]
     Dosage: 2 MG, 1 DAYS
     Route: 048
     Dates: start: 20130122
  4. METGLUCO [Concomitant]
     Indication: TYPE 2 DIABETES MELLITUS
     Dosage: 1500 MG, 1 DAYS
     Route: 048

REACTIONS (2)
  - Obstruction gastric [Recovering/Resolving]
  - Gastric cancer [Recovering/Resolving]
